FAERS Safety Report 17868671 (Version 5)
Quarter: 2024Q2

REPORT INFORMATION
  Report Type: Report from Study
  Country: CA (occurrence: CA)
  Receive Date: 20200606
  Receipt Date: 20240504
  Transmission Date: 20240716
  Serious: Yes (Other)
  Sender: FDA-Public Use
  Company Number: PHHY2019CA148001

PATIENT
  Age: 53 Year
  Sex: Female

DRUGS (8)
  1. COSENTYX [Suspect]
     Active Substance: SECUKINUMAB
     Indication: Ankylosing spondylitis
     Dosage: 150 MG, Q4W
     Route: 058
     Dates: start: 20190222
  2. COSENTYX [Suspect]
     Active Substance: SECUKINUMAB
     Indication: Psoriasis
     Dosage: 150 MG, QMO
     Route: 058
  3. COSENTYX [Suspect]
     Active Substance: SECUKINUMAB
     Dosage: 300 MG, Q4W
     Route: 058
  4. COSENTYX [Suspect]
     Active Substance: SECUKINUMAB
     Dosage: 300 MG, Q4W
     Route: 058
     Dates: start: 20210522
  5. COSENTYX [Suspect]
     Active Substance: SECUKINUMAB
     Dosage: UNK
     Route: 065
     Dates: end: 202206
  6. METHOTREXATE [Concomitant]
     Active Substance: METHOTREXATE
     Indication: Ankylosing spondylitis
     Dosage: 1 DOSAGE FORM, QW
     Route: 065
     Dates: start: 20171001
  7. MELOXICAM [Concomitant]
     Active Substance: MELOXICAM
     Indication: Ankylosing spondylitis
     Dosage: 1 DOSAGE FORM, QD
     Route: 048
     Dates: start: 20180107
  8. METHADONE [Concomitant]
     Active Substance: METHADONE HYDROCHLORIDE
     Indication: Product used for unknown indication
     Dosage: UNK, BID
     Route: 065
     Dates: start: 201806

REACTIONS (8)
  - Diffuse idiopathic skeletal hyperostosis [Unknown]
  - Pain [Unknown]
  - Painful respiration [Unknown]
  - Back pain [Unknown]
  - C-reactive protein increased [Unknown]
  - Movement disorder [Unknown]
  - Arthralgia [Unknown]
  - Therapeutic response decreased [Unknown]

NARRATIVE: CASE EVENT DATE: 20210601
